FAERS Safety Report 6610119-2 (Version None)
Quarter: 2010Q1

REPORT INFORMATION
  Report Type: 
  Country: None (occurrence: None)
  Receive Date: 20100219
  Receipt Date: 20100201
  Transmission Date: 20100710
  Serious: Yes (Hospitalization, Other)
  Sender: FDA-Public Use
  Company Number: AUR-APL-2010-00333

PATIENT
  Age: 73 Year
  Sex: Female

DRUGS (10)
  1. METFORMIN HYDROCHLORIDE [Suspect]
     Indication: TYPE 2 DIABETES MELLITUS
     Dosage: 850MG - TID
  2. ACENOCOUMAROL [Suspect]
  3. BISOPROLOL [Concomitant]
  4. TORSEMIDE [Concomitant]
  5. DIGOXIN [Concomitant]
  6. ESCITALOPRAM [Concomitant]
  7. LORMETAZEPAM [Concomitant]
  8. TERBUTALINE SULFATE [Concomitant]
  9. TIOTROPIUM BROMIDE [Concomitant]
  10. INSULIN GLARGINE [Concomitant]

REACTIONS (25)
  - ACTIVATED PARTIAL THROMBOPLASTIN TIME PROLONGED [None]
  - ANAEMIA [None]
  - ARRHYTHMIA [None]
  - BLOOD SODIUM DECREASED [None]
  - CARDIAC FAILURE [None]
  - CONTINUOUS HAEMODIAFILTRATION [None]
  - DECREASED APPETITE [None]
  - GENERAL PHYSICAL HEALTH DETERIORATION [None]
  - HEART RATE DECREASED [None]
  - HEPATIC FAILURE [None]
  - HEPATOTOXICITY [None]
  - INTERNATIONAL NORMALISED RATIO INCREASED [None]
  - IRON METABOLISM DISORDER [None]
  - LACTIC ACIDOSIS [None]
  - LEUKOCYTOSIS [None]
  - LOCALISED INTRAABDOMINAL FLUID COLLECTION [None]
  - NEUTROPHILIA [None]
  - PANCREATITIS [None]
  - PLEURAL EFFUSION [None]
  - POLYDIPSIA [None]
  - POLYURIA [None]
  - PROTHROMBIN TIME PROLONGED [None]
  - RENAL FAILURE [None]
  - THROMBOCYTOPENIA [None]
  - VOMITING [None]
